APPROVED DRUG PRODUCT: CARBIDOPA
Active Ingredient: CARBIDOPA
Strength: 25MG
Dosage Form/Route: TABLET;ORAL
Application: A205304 | Product #001 | TE Code: AB
Applicant: EDENBRIDGE PHARMACEUTICALS LLC
Approved: Feb 17, 2016 | RLD: No | RS: No | Type: RX